FAERS Safety Report 23423546 (Version 1)
Quarter: 2024Q1

REPORT INFORMATION
  Report Type: Spontaneous
  Country: US (occurrence: US)
  Receive Date: 20240119
  Receipt Date: 20240119
  Transmission Date: 20240410
  Serious: Yes (Other)
  Sender: FDA-Public Use
  Company Number: US-Covis Pharma Europe B.V.-2024COV00035

PATIENT
  Age: 83 Year
  Sex: Female

DRUGS (1)
  1. ALVESCO [Suspect]
     Active Substance: CICLESONIDE
     Dosage: 2 INHALATIONS TWICE A DAY
     Route: 055

REACTIONS (1)
  - Blood pressure decreased [Not Recovered/Not Resolved]
